FAERS Safety Report 8322881-1 (Version None)
Quarter: 2012Q2

REPORT INFORMATION
  Report Type: 
  Country: None (occurrence: None)
  Receive Date: 20120430
  Receipt Date: 20110801
  Transmission Date: 20120825
  Serious: Yes (Other)
  Sender: FDA-Public Use
  Company Number: US-TEVA-2011003976

PATIENT
  Sex: Male

DRUGS (7)
  1. PROVIGIL [Suspect]
     Route: 054
  2. COGENTIN [Concomitant]
  3. PROVIGIL [Suspect]
     Route: 048
  4. NUVIGIL [Suspect]
     Route: 048
  5. NUVIGIL [Suspect]
     Route: 054
  6. LITHIUM CARBONATE [Concomitant]
  7. TRAZODONE HCL [Concomitant]
     Indication: SLEEP DISORDER

REACTIONS (7)
  - SUICIDAL IDEATION [None]
  - DEPRESSION [None]
  - ADVERSE EVENT [None]
  - INTENTIONAL DRUG MISUSE [None]
  - LIBIDO INCREASED [None]
  - THERAPEUTIC RESPONSE UNEXPECTED [None]
  - EUPHORIC MOOD [None]
